FAERS Safety Report 20126639 (Version 1)
Quarter: 2021Q4

REPORT INFORMATION
  Report Type: Spontaneous
  Country: US (occurrence: None)
  Receive Date: 20211128
  Receipt Date: 20211128
  Transmission Date: 20220303
  Serious: Yes (Disabling, Other)
  Sender: FDA-Public Use
  Company Number: None

PATIENT
  Age: 41 Year
  Sex: Female
  Weight: 50.85 kg

DRUGS (6)
  1. CLONAZEPAM [Suspect]
     Active Substance: CLONAZEPAM
     Indication: Generalised anxiety disorder
     Dosage: OTHER QUANTITY : 3 TABLET(S);?FREQUENCY : 3 TIMES A DAY;?
     Route: 048
     Dates: start: 20210727
  2. VITAMIN D [Concomitant]
     Active Substance: VITAMIN D NOS
  3. AMITRIPTYLINE [Concomitant]
     Active Substance: AMITRIPTYLINE
  4. OMEPRAZOLE [Concomitant]
     Active Substance: OMEPRAZOLE
  5. LEXAPRO [Concomitant]
     Active Substance: ESCITALOPRAM OXALATE
  6. WOMEN^S MULTI VITAMIN [Concomitant]

REACTIONS (9)
  - Withdrawal syndrome [None]
  - Skin burning sensation [None]
  - Seizure [None]
  - Fatigue [None]
  - Decreased appetite [None]
  - Constipation [None]
  - Tinnitus [None]
  - Impaired work ability [None]
  - Pain [None]

NARRATIVE: CASE EVENT DATE: 20210701
